FAERS Safety Report 7064442-0 (Version None)
Quarter: 2010Q4

REPORT INFORMATION
  Report Type: 
  Country: None (occurrence: None)
  Receive Date: 20101022
  Receipt Date: 20101022
  Transmission Date: 20110411
  Serious: Yes (Other)
  Sender: FDA-Public Use
  Company Number: None

PATIENT
  Sex: Male
  Weight: 72.5755 kg

DRUGS (1)
  1. ALPRAZOLAM [Suspect]
     Dosage: 3 TIMES A DAY MOUTH 2 MG EVERY 6 HOURS
     Route: 048
     Dates: start: 20100901, end: 20100930

REACTIONS (1)
  - DRUG INEFFECTIVE [None]
